FAERS Safety Report 23852199 (Version 1)
Quarter: 2024Q2

REPORT INFORMATION
  Report Type: Spontaneous
  Country: US (occurrence: None)
  Receive Date: 20240513
  Receipt Date: 20240513
  Transmission Date: 20240716
  Serious: Yes (Hospitalization)
  Sender: FDA-Public Use
  Company Number: None

PATIENT
  Sex: Male

DRUGS (6)
  1. CREON [Suspect]
     Active Substance: PANCRELIPASE AMYLASE\PANCRELIPASE LIPASE\PANCRELIPASE PROTEASE
     Indication: Cystic fibrosis
     Dosage: OTHER STRENGTH : 24000 UNIT;?OTHER FREQUENCY : TID WITH MEALS;?
     Route: 048
  2. CREON [Suspect]
     Active Substance: PANCRELIPASE AMYLASE\PANCRELIPASE LIPASE\PANCRELIPASE PROTEASE
     Dosage: OTHER STRENGTH : 24000 UNIT;?OTHER FREQUENCY : WITH SNACKS;?
     Route: 048
     Dates: start: 20220401
  3. CETIRIZINE CHW [Concomitant]
  4. MVW D3000 [Concomitant]
  5. VITAMINS [Concomitant]
     Active Substance: VITAMINS
  6. SODIUM CHLORIDE [Concomitant]
     Active Substance: SODIUM CHLORIDE

REACTIONS (1)
  - Pneumonia [None]
